FAERS Safety Report 13494150 (Version 2)
Quarter: 2017Q2

REPORT INFORMATION
  Report Type: Spontaneous
  Country: DE (occurrence: DE)
  Receive Date: 20170428
  Receipt Date: 20170504
  Transmission Date: 20170830
  Serious: Yes (Life-Threatening, Other)
  Sender: FDA-Public Use
  Company Number: DE-TORRENT-00006422

PATIENT
  Age: 72 Year
  Sex: Female

DRUGS (4)
  1. LEVODOPA [Concomitant]
     Active Substance: LEVODOPA
  2. LEVETIRACETAM. [Suspect]
     Active Substance: LEVETIRACETAM
  3. LORAZEPAM. [Concomitant]
     Active Substance: LORAZEPAM
  4. VALPROIC ACID. [Suspect]
     Active Substance: VALPROIC ACID

REACTIONS (3)
  - Drug ineffective [Unknown]
  - Coma [Recovered/Resolved]
  - Ammonia increased [Unknown]

NARRATIVE: CASE EVENT DATE: 20150903
